FAERS Safety Report 4726990-5 (Version None)
Quarter: 2005Q3

REPORT INFORMATION
  Report Type: 
  Country: None (occurrence: None)
  Receive Date: 20050728
  Receipt Date: 20050720
  Transmission Date: 20060218
  Serious: Yes (Hospitalization)
  Sender: FDA-Public Use
  Company Number: US-JNJFOC-20050704000

PATIENT
  Sex: Female
  Weight: 57.15 kg

DRUGS (5)
  1. INFLIXIMAB [Suspect]
     Route: 042
  2. INFLIXIMAB [Suspect]
     Route: 042
  3. INFLIXIMAB [Suspect]
     Indication: CROHN'S DISEASE
     Route: 042
  4. AZATHIOPRINE [Suspect]
     Indication: CROHN'S DISEASE
  5. BUDESONIDE [Suspect]
     Indication: CROHN'S DISEASE

REACTIONS (1)
  - LUPUS-LIKE SYNDROME [None]
